FAERS Safety Report 9574996 (Version 2)
Quarter: 2013Q4

REPORT INFORMATION
  Report Type: Spontaneous
  Country: US (occurrence: US)
  Receive Date: 20131001
  Receipt Date: 20131119
  Transmission Date: 20140711
  Serious: Yes (Hospitalization, Other)
  Sender: FDA-Public Use
  Company Number: CHPA2013US014886

PATIENT
  Age: 64 Year
  Sex: Male

DRUGS (3)
  1. VOLTAREN GEL [Suspect]
     Indication: RHEUMATOID ARTHRITIS
     Dosage: UNK, UNK
     Route: 061
  2. VOLTAREN GEL [Suspect]
     Indication: OFF LABEL USE
  3. INSULIN [Concomitant]
     Indication: DIABETES MELLITUS

REACTIONS (6)
  - Appendicitis perforated [Recovering/Resolving]
  - Appendicitis [Recovering/Resolving]
  - Back pain [Not Recovered/Not Resolved]
  - Accident [Not Recovered/Not Resolved]
  - Intervertebral disc displacement [Not Recovered/Not Resolved]
  - Diverticulitis [Not Recovered/Not Resolved]
